FAERS Safety Report 5253272-8 (Version None)
Quarter: 2007Q1

REPORT INFORMATION
  Report Type: 
  Country: None (occurrence: None)
  Receive Date: 20070301
  Receipt Date: 20070216
  Transmission Date: 20070707
  Serious: Yes (Other)
  Sender: FDA-Public Use
  Company Number: US-ELI_LILLY_AND_COMPANY-US200612004417

PATIENT
  Age: 78 Year
  Sex: Female

DRUGS (3)
  1. FORTEO [Suspect]
     Indication: OSTEOPOROSIS
     Dosage: UNK, UNK
     Dates: start: 20040101
  2. CALCIUM [Concomitant]
     Dates: end: 20060101
  3. MULTIVITAMIN ^LAPPE^ [Concomitant]
     Dates: end: 20060101

REACTIONS (2)
  - BLOOD CALCIUM INCREASED [None]
  - RENAL IMPAIRMENT [None]
